FAERS Safety Report 9958093 (Version 1)
Quarter: 2014Q1

REPORT INFORMATION
  Report Type: Report from Study
  Country: US (occurrence: US)
  Receive Date: 20140304
  Receipt Date: 20140304
  Transmission Date: 20141002
  Serious: No
  Sender: FDA-Public Use
  Company Number: US-ABBVIE-13P-163-1094274-00

PATIENT
  Age: 23 Year
  Sex: Female

DRUGS (13)
  1. HUMIRA [Suspect]
     Indication: COLITIS ULCERATIVE
  2. ZYRTEC [Concomitant]
     Indication: HYPERSENSITIVITY
     Dosage: 10MG DAILY
  3. ENALAPRIL [Concomitant]
     Indication: HYPERTENSION
  4. IMPLANON [Concomitant]
     Indication: ENDOMETRIOSIS
  5. PROZAC [Concomitant]
     Indication: AFFECTIVE DISORDER
     Dosage: 10MG DAILY
  6. TOPAMAX [Concomitant]
     Indication: MIGRAINE
  7. AMITIZA [Concomitant]
     Indication: IRRITABLE BOWEL SYNDROME
     Dosage: 24 MCG DAILY
  8. PROBIOTICS [Concomitant]
     Indication: PRODUCT USED FOR UNKNOWN INDICATION
  9. MULTIVITAMIN [Concomitant]
     Indication: PRODUCT USED FOR UNKNOWN INDICATION
  10. LORTAB [Concomitant]
     Indication: ABDOMINAL PAIN
     Dosage: 10/500 MG
  11. LORTAB [Concomitant]
     Indication: COLITIS ULCERATIVE
  12. FIORICET [Concomitant]
     Indication: MIGRAINE
     Dosage: 50MG/325MG/40MG
  13. NEXIUM [Concomitant]
     Indication: PRODUCT USED FOR UNKNOWN INDICATION

REACTIONS (3)
  - Arthralgia [Not Recovered/Not Resolved]
  - Arthralgia [Not Recovered/Not Resolved]
  - Lupus-like syndrome [Not Recovered/Not Resolved]
